FAERS Safety Report 5073321-X (Version None)
Quarter: 2006Q3

REPORT INFORMATION
  Report Type: 
  Country: None (occurrence: None)
  Receive Date: 20060802
  Receipt Date: 20060720
  Transmission Date: 20061208
  Serious: Yes (Other)
  Sender: FDA-Public Use
  Company Number: 2006090092

PATIENT
  Age: 88 Year
  Sex: Male
  Weight: 79.8331 kg

DRUGS (4)
  1. NORVASC [Suspect]
     Indication: HYPERTENSION
     Dosage: 5 MG (5 MG, 1 IN 1 D)
     Dates: start: 20060718
  2. ASPIRIN [Concomitant]
  3. STEROID (ALL OTHER THERAPEUTIC PRODUCTS) [Concomitant]
  4. AMBIEN [Concomitant]

REACTIONS (3)
  - RASH [None]
  - SKIN HAEMORRHAGE [None]
  - TELANGIECTASIA [None]
